FAERS Safety Report 6433059-0 (Version None)
Quarter: 2009Q4

REPORT INFORMATION
  Report Type: 
  Country: None (occurrence: None)
  Receive Date: 20091109
  Receipt Date: 20091104
  Transmission Date: 20100525
  Serious: Yes (Life-Threatening)
  Sender: FDA-Public Use
  Company Number: CH-ASTRAZENECA-2009SE24327

PATIENT
  Age: 50 Year
  Sex: Male

DRUGS (6)
  1. NEXIUM [Suspect]
     Indication: GASTRITIS
     Route: 048
     Dates: start: 20090128
  2. SOLIAN [Suspect]
     Indication: SCHIZOPHRENIA, CATATONIC TYPE
  3. CLOPIN ECO [Suspect]
     Indication: SCHIZOPHRENIA, CATATONIC TYPE
     Route: 048
     Dates: end: 20090625
  4. CLOPIN ECO [Suspect]
     Route: 048
     Dates: start: 20090625
  5. LAMICTAL [Concomitant]
     Indication: BIPOLAR DISORDER
     Route: 048
  6. DALMADORM [Concomitant]
     Indication: INSOMNIA
     Route: 048

REACTIONS (5)
  - AGITATION [None]
  - BLOOD CREATINE PHOSPHOKINASE INCREASED [None]
  - HYPERTHERMIA [None]
  - NEUROLEPTIC MALIGNANT SYNDROME [None]
  - TACHYCARDIA [None]
